FAERS Safety Report 9053893 (Version 2)
Quarter: 2013Q1

REPORT INFORMATION
  Report Type: Report from Study
  Country: US (occurrence: US)
  Receive Date: 20130206
  Receipt Date: 20130329
  Transmission Date: 20140127
  Serious: Yes (Other)
  Sender: FDA-Public Use
  Company Number: US-JNJFOC-20130200524

PATIENT
  Sex: Female
  Weight: 47.63 kg

DRUGS (3)
  1. STELARA [Suspect]
     Indication: CROHN^S DISEASE
     Route: 058
     Dates: start: 20110808
  2. CLONAZEPAM [Concomitant]
     Indication: SLEEP DISORDER
     Dates: start: 2012
  3. CONTRACEPTIVES NOS [Concomitant]
     Indication: CONTRACEPTION

REACTIONS (3)
  - Ophthalmic herpes zoster [Recovered/Resolved]
  - Drug dose omission [Recovered/Resolved]
  - Incorrect storage of drug [Unknown]
